FAERS Safety Report 8351506-4 (Version None)
Quarter: 2012Q2

REPORT INFORMATION
  Report Type: 
  Country: None (occurrence: None)
  Receive Date: 20120511
  Receipt Date: 20120427
  Transmission Date: 20120825
  Serious: Yes (Death, Hospitalization, Other)
  Sender: FDA-Public Use
  Company Number: -MYLANLABS-2009AC000348

PATIENT
  Sex: Female
  Weight: 71.67 kg

DRUGS (60)
  1. PLAVIX [Concomitant]
  2. MULTI-VITAMINS [Concomitant]
     Dosage: BACMIN
  3. PROMETHAZINE [Concomitant]
  4. DIPHENOXYLATE [Concomitant]
  5. CP DEC DM [Concomitant]
  6. SERTRALINE HYDROCHLORIDE [Concomitant]
  7. INTEGRILIN [Concomitant]
  8. LIBRAX [Concomitant]
  9. LIPITOR [Concomitant]
  10. METOLAZONE [Concomitant]
  11. ZETIA [Concomitant]
  12. ATENOLOL [Concomitant]
  13. DEPO-ESTRADIOL [Concomitant]
  14. ANTI-ASTHMATICS [Concomitant]
     Dosage: HFA - HYDROFLUROALKANE
  15. SULFAMETHOXAZOLE AND TRIMETHOPRIM [Concomitant]
  16. ACCUPRIL [Concomitant]
  17. LEXAPRO [Concomitant]
  18. TIZANIDINE [Concomitant]
  19. CLONIDINE [Concomitant]
  20. CLONAZEPAM [Concomitant]
  21. XANAX [Concomitant]
  22. ALPRAZOLAM [Concomitant]
  23. LISINOPRIL [Concomitant]
  24. POTASSIUM CHLORIDE [Concomitant]
  25. AMOXI TRIPTYLIN W/POTASSIUM CLAVULATE [Concomitant]
  26. SIMVASTATIN [Concomitant]
  27. FENTANYL CITRATE [Concomitant]
  28. FLOMAX [Concomitant]
  29. AMOXICILLIN [Concomitant]
  30. FERROUS SULFATE TAB [Concomitant]
  31. VYTORIN [Concomitant]
  32. ANDEHIST DM NR [Concomitant]
  33. CVS STOOL SOFTENER [Concomitant]
  34. ZAROXOLYN [Concomitant]
  35. SKELAXIN [Concomitant]
  36. NITROGLYCERIN [Concomitant]
  37. SPIRONOLACTONE [Concomitant]
  38. BONIVA [Concomitant]
  39. WELLBUTRIN XL [Concomitant]
  40. HYOSCYAMINE [Concomitant]
  41. ISOSORBIDE DINITRATE [Concomitant]
  42. SURFAK [Concomitant]
  43. INAPSINE [Concomitant]
  44. FUROSEMIDE [Concomitant]
  45. TEMAZEPAM [Concomitant]
  46. COREG [Concomitant]
  47. BIDIL [Concomitant]
  48. CARVEDILOL [Concomitant]
  49. PROVENTIL [Concomitant]
  50. AZITHROMYCIN [Concomitant]
  51. HYDROCHLOROTHIAZIDE [Concomitant]
  52. ATROPINE [Concomitant]
  53. MYHIST DM [Concomitant]
  54. ASPIRIN [Concomitant]
  55. PAXIL [Concomitant]
  56. DIGOXIN [Suspect]
     Route: 048
     Dates: start: 20070509, end: 20090318
  57. METOPROLOL TARTRATE [Concomitant]
  58. TRAMADOL HYDROCHLORIDE [Concomitant]
  59. SULFAMETHOXAZOLE [Concomitant]
  60. VERSED [Concomitant]

REACTIONS (77)
  - ILL-DEFINED DISORDER [None]
  - HYPERLIPIDAEMIA [None]
  - ACUTE MYOCARDIAL INFARCTION [None]
  - PALPITATIONS [None]
  - DYSPNOEA [None]
  - TOXICITY TO VARIOUS AGENTS [None]
  - BACK PAIN [None]
  - JUGULAR VEIN DISTENSION [None]
  - CARDIAC FAILURE ACUTE [None]
  - MYOCARDIAL ISCHAEMIA [None]
  - COMPUTERISED TOMOGRAM ABNORMAL [None]
  - LUNG NEOPLASM [None]
  - VENTRICULAR EXTRASYSTOLES [None]
  - ECONOMIC PROBLEM [None]
  - ARTERIOSCLEROSIS [None]
  - NAUSEA [None]
  - CARDIOMEGALY [None]
  - ATRIOVENTRICULAR BLOCK [None]
  - ATRIOVENTRICULAR BLOCK FIRST DEGREE [None]
  - SYNCOPE [None]
  - ANAEMIA [None]
  - CHEST X-RAY ABNORMAL [None]
  - DYSPNOEA EXERTIONAL [None]
  - FATIGUE [None]
  - PHARYNGEAL ERYTHEMA [None]
  - SCAN MYOCARDIAL PERFUSION ABNORMAL [None]
  - ANGINA UNSTABLE [None]
  - RALES [None]
  - PERICARDIAL EFFUSION [None]
  - THYROID NEOPLASM [None]
  - URINARY TRACT INFECTION [None]
  - WEIGHT DECREASED [None]
  - CARDIAC VALVE DISEASE [None]
  - DIARRHOEA [None]
  - ELECTROCARDIOGRAM ABNORMAL [None]
  - DEATH [None]
  - CARDIAC FAILURE CONGESTIVE [None]
  - CARDIAC MURMUR [None]
  - ASTHENIA [None]
  - LUNG DISORDER [None]
  - ORTHOPNOEA [None]
  - CARDIAC FAILURE CHRONIC [None]
  - RENAL FAILURE CHRONIC [None]
  - GASTROINTESTINAL HAEMORRHAGE [None]
  - PLEURAL EFFUSION [None]
  - ABDOMINAL PAIN [None]
  - FLAT AFFECT [None]
  - IRON DEFICIENCY [None]
  - PNEUMONIA ASPIRATION [None]
  - ABDOMINAL DISTENSION [None]
  - OEDEMA [None]
  - RENAL FAILURE [None]
  - ARTHRALGIA [None]
  - BUNDLE BRANCH BLOCK RIGHT [None]
  - TRICUSPID VALVE STENOSIS [None]
  - LABORATORY TEST ABNORMAL [None]
  - MUSCULOSKELETAL PAIN [None]
  - RESPIRATORY TRACT CONGESTION [None]
  - SYNOVIAL CYST [None]
  - CORONARY ARTERIAL STENT INSERTION [None]
  - DEVICE OCCLUSION [None]
  - DEPRESSION [None]
  - ANXIETY [None]
  - RADICULOPATHY [None]
  - CARDIOMYOPATHY [None]
  - MITRAL VALVE INCOMPETENCE [None]
  - PALLOR [None]
  - INJURY [None]
  - ISCHAEMIC CARDIOMYOPATHY [None]
  - CHEST PAIN [None]
  - DYSLIPIDAEMIA [None]
  - DYSPNOEA PAROXYSMAL NOCTURNAL [None]
  - MONOCLONAL GAMMOPATHY [None]
  - SCIATICA [None]
  - CYST [None]
  - COUGH [None]
  - HYPOTENSION [None]
